FAERS Safety Report 17496020 (Version 2)
Quarter: 2020Q1

REPORT INFORMATION
  Report Type: Spontaneous
  Country: US (occurrence: US)
  Receive Date: 20200303
  Receipt Date: 20200317
  Transmission Date: 20200409
  Serious: Yes (Hospitalization)
  Sender: FDA-Public Use
  Company Number: US-INCYTE CORPORATION-2020IN001770

PATIENT

DRUGS (3)
  1. JAKAFI [Suspect]
     Active Substance: RUXOLITINIB
     Indication: LABORATORY TEST ABNORMAL
     Dosage: 5 MILLIGRAM, QD
     Route: 048
  2. VITAMIN B12 [Concomitant]
     Active Substance: CYANOCOBALAMIN
     Indication: PRODUCT USED FOR UNKNOWN INDICATION
     Dosage: 1000 MICROGRAM
     Route: 065
  3. JAKAFI [Suspect]
     Active Substance: RUXOLITINIB
     Indication: CHEMOTHERAPY
     Dosage: 10 MILLIGRAM (2 5 MG TABLETS) QAM AND 5 MILLIGRAM (1 TABLET) QHS
     Route: 065

REACTIONS (4)
  - Asthenia [Unknown]
  - Off label use [Unknown]
  - Blood count abnormal [Unknown]
  - Product dose omission [Unknown]
